FAERS Safety Report 6243659-9 (Version None)
Quarter: 2009Q2

REPORT INFORMATION
  Report Type: 
  Country: None (occurrence: None)
  Receive Date: 20090624
  Receipt Date: 20090617
  Transmission Date: 20091009
  Serious: Yes (Other)
  Sender: FDA-Public Use
  Company Number: US-AVENTIS-200913101US

PATIENT
  Sex: Female
  Weight: 19.96 kg

DRUGS (2)
  1. ALLEGRA [Suspect]
     Route: 048
     Dates: start: 20090317, end: 20090408
  2. ALLEGRA [Suspect]
     Dosage: DOSE: UNK
     Dates: start: 20080501

REACTIONS (2)
  - HALLUCINATION, AUDITORY [None]
  - THINKING ABNORMAL [None]
